FAERS Safety Report 16478618 (Version 2)
Quarter: 2019Q3

REPORT INFORMATION
  Report Type: Spontaneous
  Country: US (occurrence: US)
  Receive Date: 20190626
  Receipt Date: 20190806
  Transmission Date: 20191004
  Serious: Yes (Hospitalization)
  Sender: FDA-Public Use
  Company Number: US-ASTRAZENECA-2019SE89829

PATIENT
  Age: 27170 Day
  Sex: Male
  Weight: 83.9 kg

DRUGS (3)
  1. SYMBICORT [Suspect]
     Active Substance: BUDESONIDE\FORMOTEROL FUMARATE DIHYDRATE
     Indication: CHRONIC OBSTRUCTIVE PULMONARY DISEASE
     Dosage: UNKNOWN STRENGTH, 2 PUFFS TWICE DAILY
     Route: 055
     Dates: end: 2017
  2. BEVESPI AEROSPHERE [Suspect]
     Active Substance: FORMOTEROL FUMARATE\GLYCOPYRROLATE
     Indication: CHRONIC OBSTRUCTIVE PULMONARY DISEASE
     Dosage: 9 MCG / 4.8 MCG;TWO TIMES A DAY
     Route: 055
     Dates: start: 2017
  3. PROAIR HFA [Concomitant]
     Active Substance: ALBUTEROL SULFATE
     Indication: ILL-DEFINED DISORDER
     Dosage: 2 PUFFS EVERY 4 HOURS AS NEEDED
     Route: 055

REACTIONS (4)
  - Oxygen saturation decreased [Unknown]
  - Aspiration [Unknown]
  - Device issue [Unknown]
  - Dyspnoea [Unknown]

NARRATIVE: CASE EVENT DATE: 20190520
